FAERS Safety Report 6421737-9 (Version None)
Quarter: 2009Q4

REPORT INFORMATION
  Report Type: 
  Country: None (occurrence: None)
  Receive Date: 20091030
  Receipt Date: 20091026
  Transmission Date: 20100525
  Serious: Yes (Hospitalization)
  Sender: FDA-Public Use
  Company Number: US-ELI_LILLY_AND_COMPANY-US200910006883

PATIENT
  Sex: Female

DRUGS (5)
  1. HUMALOG [Suspect]
     Dosage: UNK, UNKNOWN
  2. HUMALOG [Suspect]
     Dosage: UNK, UNKNOWN
  3. HUMALOG [Suspect]
  4. LANTUS [Concomitant]
  5. RECLAST [Concomitant]
     Dosage: UNK, OTHER
     Route: 042

REACTIONS (11)
  - ARTHRALGIA [None]
  - ARTHRITIS [None]
  - DIABETIC ULCER [None]
  - DRUG DISPENSING ERROR [None]
  - EMPHYSEMA [None]
  - FALL [None]
  - HERPES ZOSTER [None]
  - JOINT INJURY [None]
  - PNEUMONIA [None]
  - SCRATCH [None]
  - STAPHYLOCOCCAL INFECTION [None]
